APPROVED DRUG PRODUCT: OXYCODONE HYDROCHLORIDE
Active Ingredient: OXYCODONE HYDROCHLORIDE
Strength: 5MG
Dosage Form/Route: TABLET;ORAL
Application: A090659 | Product #001
Applicant: SUN PHARMACEUTICAL INDUSTRIES INC
Approved: Apr 10, 2009 | RLD: No | RS: No | Type: DISCN